FAERS Safety Report 8824862 (Version 1)
Quarter: 2012Q4

REPORT INFORMATION
  Report Type: 
  Country: US (occurrence: US)
  Receive Date: 20121004
  Receipt Date: 20121004
  Transmission Date: 20130627
  Serious: Yes (Other)
  Sender: FDA-Public Use
  Company Number: US-BAYER-2012-101849

PATIENT
  Age: 27 Year
  Sex: Female

DRUGS (1)
  1. MIRENA [Suspect]
     Dosage: 20 mcg/24hr, CONT
     Route: 015
     Dates: start: 200811

REACTIONS (4)
  - Vaginal haemorrhage [None]
  - Feeling abnormal [None]
  - Abdominal pain [None]
  - Medical device complication [None]
